FAERS Safety Report 6916692-9 (Version None)
Quarter: 2010Q3

REPORT INFORMATION
  Report Type: 
  Country: None (occurrence: None)
  Receive Date: 20100810
  Receipt Date: 20100803
  Transmission Date: 20110219
  Serious: Yes (Other)
  Sender: FDA-Public Use
  Company Number: CA-B.I. PHARMACEUTICALS,INC./RIDGEFIELD-2010-DE-04190GD

PATIENT
  Age: 53 Year
  Sex: Female
  Weight: 70 kg

DRUGS (2)
  1. CLONIDINE [Suspect]
     Indication: NERVE BLOCK
     Dosage: 30 ML
  2. ROPIVACAINE [Suspect]
     Indication: NERVE BLOCK
     Dosage: 30 ML OF 0.5%

REACTIONS (1)
  - CONVULSION [None]
